APPROVED DRUG PRODUCT: MINIZIDE
Active Ingredient: POLYTHIAZIDE; PRAZOSIN HYDROCHLORIDE
Strength: 0.5MG;EQ 2MG BASE
Dosage Form/Route: CAPSULE;ORAL
Application: N017986 | Product #002
Applicant: PFIZER INC
Approved: Approved Prior to Jan 1, 1982 | RLD: No | RS: No | Type: DISCN